FAERS Safety Report 20091117 (Version 1)
Quarter: 2021Q4

REPORT INFORMATION
  Report Type: Spontaneous
  Country: CA (occurrence: CA)
  Receive Date: 20211119
  Receipt Date: 20211119
  Transmission Date: 20220303
  Serious: Yes (Death, Other)
  Sender: FDA-Public Use
  Company Number: CA-PFIZER INC-202101605570

PATIENT
  Age: 63 Year
  Sex: Female

DRUGS (4)
  1. REVATIO [Suspect]
     Active Substance: SILDENAFIL CITRATE
     Indication: Pulmonary arterial hypertension
     Dosage: UNK
  2. REVATIO [Suspect]
     Active Substance: SILDENAFIL CITRATE
     Indication: Connective tissue disorder
  3. OPSUMIT [Concomitant]
     Active Substance: MACITENTAN
  4. ADCIRCA [Concomitant]
     Active Substance: TADALAFIL

REACTIONS (1)
  - Death [Fatal]

NARRATIVE: CASE EVENT DATE: 20210201
